FAERS Safety Report 8426798-3 (Version None)
Quarter: 2012Q2

REPORT INFORMATION
  Report Type: 
  Country: None (occurrence: None)
  Receive Date: 20120611
  Receipt Date: 20120607
  Transmission Date: 20120825
  Serious: Yes (Hospitalization)
  Sender: FDA-Public Use
  Company Number: PHEH2012US011643

PATIENT
  Sex: Female

DRUGS (4)
  1. METOPROLOL TARTRATE [Concomitant]
  2. DIGOXIN [Concomitant]
  3. COZAAR [Concomitant]
  4. GILENYA [Suspect]
     Indication: MULTIPLE SCLEROSIS
     Dosage: 0.5 MG, QD
     Route: 048
     Dates: start: 20120606

REACTIONS (2)
  - HEADACHE [None]
  - HEART RATE IRREGULAR [None]
